FAERS Safety Report 7260306-8 (Version None)
Quarter: 2011Q1

REPORT INFORMATION
  Report Type: 
  Country: None (occurrence: None)
  Receive Date: 20110130
  Receipt Date: 20101004
  Transmission Date: 20110831
  Serious: No
  Sender: FDA-Public Use
  Company Number: US-ABBOTT-10P-163-0670264-00

PATIENT
  Sex: Female
  Weight: 108.96 kg

DRUGS (2)
  1. MERCAPTOPURINE [Concomitant]
     Indication: PRODUCT USED FOR UNKNOWN INDICATION
  2. HUMIRA [Suspect]
     Indication: CROHN'S DISEASE
     Dates: start: 20100101

REACTIONS (4)
  - DRUG DOSE OMISSION [None]
  - INJECTION SITE PAPULE [None]
  - INJECTION SITE PAIN [None]
  - DEVICE MALFUNCTION [None]
